FAERS Safety Report 9265926 (Version 2)
Quarter: 2013Q2

REPORT INFORMATION
  Report Type: Spontaneous
  Country: US (occurrence: US)
  Receive Date: 20130501
  Receipt Date: 20130627
  Transmission Date: 20140414
  Serious: Yes (Other)
  Sender: FDA-Public Use
  Company Number: CHPA2013US007269

PATIENT
  Age: 60 Year
  Sex: Female

DRUGS (2)
  1. PRIVATE LABEL [Suspect]
     Indication: SMOKING CESSATION THERAPY
     Dosage: 21 MG, ONCE/SINGLE
     Route: 062
     Dates: start: 20130423, end: 20130423
  2. PRIVATE LABEL [Suspect]
     Dosage: UNK, UNK
     Route: 062

REACTIONS (7)
  - Hallucination [Recovered/Resolved]
  - Incontinence [Recovered/Resolved]
  - Road traffic accident [Recovered/Resolved]
  - Frustration [Unknown]
  - Overdose [Unknown]
  - Treatment noncompliance [Unknown]
  - Nightmare [Recovered/Resolved]
